FAERS Safety Report 12718685 (Version 3)
Quarter: 2016Q4

REPORT INFORMATION
  Report Type: Spontaneous
  Country: US (occurrence: US)
  Receive Date: 20160906
  Receipt Date: 20161025
  Transmission Date: 20170207
  Serious: No
  Sender: FDA-Public Use
  Company Number: US-GLAXOSMITHKLINE-US2016127245

PATIENT
  Age: 83 Year
  Sex: Male

DRUGS (2)
  1. TRANSDERM SCOP [Suspect]
     Active Substance: SCOPOLAMINE
     Dosage: UNK (1 PATCH EVER 3 DAYS)
     Dates: start: 2016
  2. TRANSDERM SCOP [Suspect]
     Active Substance: SCOPOLAMINE
     Indication: SINUS DISORDER
     Dosage: UNK
     Dates: start: 201511

REACTIONS (5)
  - Off label use [Unknown]
  - Product quality issue [Unknown]
  - Therapeutic response unexpected [Unknown]
  - Decreased appetite [Unknown]
  - Oligodipsia [Unknown]

NARRATIVE: CASE EVENT DATE: 201511
